FAERS Safety Report 6714025-4 (Version None)
Quarter: 2010Q2

REPORT INFORMATION
  Report Type: 
  Country: None (occurrence: None)
  Receive Date: 20100506
  Receipt Date: 20100423
  Transmission Date: 20101027
  Serious: Yes (Other)
  Sender: FDA-Public Use
  Company Number: PHHY2010NL25819

PATIENT
  Sex: Female
  Weight: 30 kg

DRUGS (3)
  1. TEGRETOL [Suspect]
     Dosage: UNK
  2. KEPPRA [Suspect]
     Dosage: 2DD 700 MG
     Route: 048
     Dates: start: 20060509
  3. KEPPRA [Suspect]
     Route: 048

REACTIONS (3)
  - DELIRIUM [None]
  - DRUG LEVEL INCREASED [None]
  - DRUG TOXICITY [None]
